FAERS Safety Report 4459845-4 (Version None)
Quarter: 2004Q3

REPORT INFORMATION
  Report Type: 
  Country: None (occurrence: None)
  Receive Date: 20040928
  Receipt Date: 20031219
  Transmission Date: 20050211
  Serious: No
  Sender: FDA-Public Use
  Company Number: US-BRISTOL-MYERS SQUIBB COMPANY-12462909

PATIENT
  Age: 20 Month
  Sex: Male
  Weight: 10 kg

DRUGS (2)
  1. TRIMOX [Suspect]
     Indication: EAR INFECTION
     Route: 048
     Dates: start: 20031204, end: 20031207
  2. PULMICORT [Concomitant]

REACTIONS (2)
  - EATING DISORDER [None]
  - VOMITING [None]
